FAERS Safety Report 7668072-9 (Version None)
Quarter: 2011Q3

REPORT INFORMATION
  Report Type: 
  Country: None (occurrence: None)
  Receive Date: 20110803
  Receipt Date: 20110630
  Transmission Date: 20111222
  Serious: Yes (Congenital Anomaly, Other)
  Sender: FDA-Public Use
  Company Number: US-ACCORD-009393

PATIENT
  Sex: Male

DRUGS (5)
  1. OMEPRAZOLE [Concomitant]
  2. TACROLIMUS [Concomitant]
  3. FERROUS SULPHATE (FERROUS SULPHATE) [Concomitant]
  4. PREDNISONE [Concomitant]
  5. MYCOPHENOLATE MOFETIL [Suspect]
     Dosage: TRANSPLACENTAL
     Route: 064

REACTIONS (28)
  - FOETAL GROWTH RESTRICTION [None]
  - CONGENITAL DEFORMITY OF CLAVICLE [None]
  - HEART DISEASE CONGENITAL [None]
  - DOUBLE OUTLET RIGHT VENTRICLE [None]
  - MITRAL VALVE ATRESIA [None]
  - PULMONARY ARTERY STENOSIS CONGENITAL [None]
  - IRIS COLOBOMA [None]
  - FAILURE TO THRIVE [None]
  - CAESAREAN SECTION [None]
  - DELAYED FONTANELLE CLOSURE [None]
  - JOINT ANKYLOSIS [None]
  - ATRIAL SEPTAL DEFECT [None]
  - CONGENITAL VISUAL ACUITY REDUCED [None]
  - CRYPTORCHISM [None]
  - MICROSOMIA [None]
  - DEVELOPMENTAL DELAY [None]
  - RIB HYPOPLASIA [None]
  - PTERYGIUM COLLI [None]
  - MICROTIA [None]
  - MICROPHTHALMOS [None]
  - MICROGNATHIA [None]
  - CONGENITAL ACROCHORDON [None]
  - RESPIRATORY DISTRESS [None]
  - ANOMALOUS PULMONARY VENOUS CONNECTION [None]
  - MATERNAL DRUGS AFFECTING FOETUS [None]
  - ANOTIA [None]
  - CLEFT PALATE [None]
  - HYPOTONIA [None]
